FAERS Safety Report 8791755 (Version 1)
Quarter: 2012Q4

REPORT INFORMATION
  Report Type: 
  Country: US (occurrence: US)
  Receive Date: 20120918
  Receipt Date: 20120918
  Transmission Date: 20130627
  Serious: No
  Sender: FDA-Public Use
  Company Number: US-ASTRAZENECA-2012SE70132

PATIENT
  Age: 5 Year
  Sex: Female
  Weight: 37 kg

DRUGS (13)
  1. NEXIUM [Suspect]
     Indication: OESOPHAGEAL ATRESIA
     Route: 048
  2. NEXIUM [Suspect]
     Indication: GASTROOESOPHAGEAL REFLUX DISEASE
     Route: 048
  3. NEXIUM [Suspect]
     Indication: OESOPHAGEAL ATRESIA
     Route: 048
  4. NEXIUM [Suspect]
     Indication: GASTROOESOPHAGEAL REFLUX DISEASE
     Route: 048
  5. NEXIUM [Suspect]
     Indication: OESOPHAGEAL ATRESIA
     Dosage: 40 MG +15 WATER =3.75 MG, ONCE A DAY
     Route: 048
     Dates: start: 2011
  6. NEXIUM [Suspect]
     Indication: GASTROOESOPHAGEAL REFLUX DISEASE
     Dosage: 40 MG +15 WATER =3.75 MG, ONCE A DAY
     Route: 048
     Dates: start: 2011
  7. FLOVENT [Concomitant]
  8. RESPIRATORY MEDICATIONS [Concomitant]
     Indication: LUNG DISORDER
  9. VENTOLIN [Concomitant]
  10. ATROVENT [Concomitant]
  11. XOPENEX [Concomitant]
  12. ORAPRED [Concomitant]
  13. NEBULIZER MEDICATIONS [Concomitant]

REACTIONS (5)
  - Vomiting [Unknown]
  - Retching [Unknown]
  - Off label use [Unknown]
  - Off label use [Unknown]
  - Drug dose omission [Unknown]
